FAERS Safety Report 13692114 (Version 7)
Quarter: 2018Q1

REPORT INFORMATION
  Report Type: Spontaneous
  Country: JP (occurrence: JP)
  Receive Date: 20170627
  Receipt Date: 20180314
  Transmission Date: 20180508
  Serious: Yes (Life-Threatening, Hospitalization, Disabling, Other)
  Sender: FDA-Public Use
  Company Number: JP-009507513-1706JPN001177J

PATIENT
  Age: 85 Year
  Sex: Male
  Weight: 59 kg

DRUGS (1)
  1. KEYTRUDA [Suspect]
     Active Substance: PEMBROLIZUMAB
     Indication: LUNG ADENOCARCINOMA
     Dosage: 200 MG, Q3W
     Route: 041
     Dates: start: 20170601, end: 20170601

REACTIONS (2)
  - Pneumonia [Recovering/Resolving]
  - Neuropathy peripheral [Recovering/Resolving]

NARRATIVE: CASE EVENT DATE: 20170613
